FAERS Safety Report 8451791-4 (Version None)
Quarter: 2012Q2

REPORT INFORMATION
  Report Type: 
  Country: None (occurrence: None)
  Receive Date: 20120620
  Receipt Date: 20120319
  Transmission Date: 20120825
  Serious: No
  Sender: FDA-Public Use
  Company Number: US-VERTEX PHARMACEUTICALS INC.-AE-2012-003891

PATIENT
  Sex: Male
  Weight: 113.5 kg

DRUGS (3)
  1. INCIVEK [Suspect]
     Route: 048
     Dates: start: 20120317
  2. RIBAVIRIN [Concomitant]
     Dates: start: 20120317
  3. PEGINTERFERON ALFA-2A [Concomitant]
     Route: 058
     Dates: start: 20120317

REACTIONS (4)
  - ANAL PRURITUS [None]
  - HAEMORRHOIDS [None]
  - ANORECTAL DISCOMFORT [None]
  - DIARRHOEA [None]
